FAERS Safety Report 10974616 (Version 1)
Quarter: 2015Q2

REPORT INFORMATION
  Report Type: Spontaneous
  Country: GB (occurrence: GB)
  Receive Date: 20150401
  Receipt Date: 20150401
  Transmission Date: 20150821
  Serious: Yes (Hospitalization)
  Sender: FDA-Public Use
  Company Number: GB-WATSON-2015-07024

PATIENT
  Age: 55 Year
  Sex: Female

DRUGS (2)
  1. MYCOPHENOLATE MOFETIL ACCORD HEALTHCARE [Suspect]
     Active Substance: MYCOPHENOLATE MOFETIL
     Indication: IMMUNOSUPPRESSION
     Dosage: 500 MG, UNK (50)
     Route: 048
  2. PREDNISOLONE (UNKNOWN) [Suspect]
     Active Substance: PREDNISOLONE
     Indication: IMMUNOSUPPRESSION
     Dosage: 30 MG, UNK. TABLET-STRENGTH:5MG (28)
     Route: 048

REACTIONS (1)
  - Lower respiratory tract infection [Unknown]
